FAERS Safety Report 26123856 (Version 2)
Quarter: 2025Q4

REPORT INFORMATION
  Report Type: Spontaneous
  Country: US (occurrence: US)
  Receive Date: 20251205
  Receipt Date: 20251205
  Transmission Date: 20260118
  Serious: No
  Sender: JOHNSON AND JOHNSON
  Company Number: US-JNJFOC-20251149945

PATIENT
  Sex: Female

DRUGS (1)
  1. XARELTO [Suspect]
     Active Substance: RIVAROXABAN
     Indication: Thrombophlebitis
     Route: 048

REACTIONS (8)
  - Phlebitis [Unknown]
  - Cellulitis [Unknown]
  - Thrombophlebitis [Unknown]
  - Gait disturbance [Unknown]
  - Drug ineffective [Unknown]
  - Blood pressure increased [Unknown]
  - Surgery [Unknown]
  - Off label use [Unknown]

NARRATIVE: CASE EVENT DATE: 20250101
